FAERS Safety Report 12456037 (Version 1)
Quarter: 2016Q2

REPORT INFORMATION
  Report Type: Spontaneous
  Country: US (occurrence: US)
  Receive Date: 20160610
  Receipt Date: 20160610
  Transmission Date: 20160815
  Serious: Yes (Hospitalization, Other)
  Sender: FDA-Public Use
  Company Number: US-PFIZER INC-2015387995

PATIENT
  Age: 55 Year
  Sex: Male

DRUGS (3)
  1. TESTOSTERONE. [Suspect]
     Active Substance: TESTOSTERONE
     Indication: HORMONE REPLACEMENT THERAPY
     Dosage: UNK, 1X/DAY
     Dates: start: 20100921
  2. TESTOSTERONE CIPIONATE [Suspect]
     Active Substance: TESTOSTERONE
     Indication: HORMONE REPLACEMENT THERAPY
     Dosage: UNK, 1X/DAY
     Dates: start: 20111011
  3. METFORMIN [Concomitant]
     Active Substance: METFORMIN HYDROCHLORIDE
     Indication: DIABETES MELLITUS
     Dosage: UNK
     Dates: start: 2004

REACTIONS (7)
  - Asthenia [Not Recovered/Not Resolved]
  - Mobility decreased [Unknown]
  - Fatigue [Unknown]
  - Myocardial infarction [Unknown]
  - Cardiac disorder [Not Recovered/Not Resolved]
  - Dyspnoea [Not Recovered/Not Resolved]
  - Cardiomegaly [Unknown]
